FAERS Safety Report 9096830 (Version 3)
Quarter: 2013Q1

REPORT INFORMATION
  Report Type: Other
  Country: JP (occurrence: JP)
  Receive Date: 20130211
  Receipt Date: 20130315
  Transmission Date: 20140127
  Serious: Yes (Other)
  Sender: FDA-Public Use
  Company Number: JP-BRISTOL-MYERS SQUIBB COMPANY-17357625

PATIENT
  Age: 74 Year
  Sex: Male
  Weight: 53.6 kg

DRUGS (5)
  1. ERBITUX SOLN FOR INF 5MG/ML [Suspect]
     Indication: RECTAL CANCER
     Route: 041
     Dates: start: 20120120, end: 20120706
  2. IRINOTECAN [Concomitant]
     Indication: RECTAL CANCER
     Route: 041
     Dates: start: 20120120, end: 20120706
  3. TAKEPRON [Concomitant]
     Indication: GASTROOESOPHAGEAL REFLUX DISEASE
     Dosage: TAB
     Route: 048
  4. AMLODIN [Concomitant]
     Indication: HYPERTENSION
     Dosage: TABS
     Route: 048
  5. MAGMITT [Concomitant]
     Indication: CONSTIPATION
     Dosage: TAB
     Route: 048

REACTIONS (1)
  - Pyoderma gangrenosum [Recovering/Resolving]
